FAERS Safety Report 6823565-9 (Version None)
Quarter: 2010Q3

REPORT INFORMATION
  Report Type: 
  Country: None (occurrence: None)
  Receive Date: 20100708
  Receipt Date: 20060722
  Transmission Date: 20110219
  Serious: No
  Sender: FDA-Public Use
  Company Number: US-PFIZER INC-2006091908

PATIENT
  Sex: Female
  Weight: 73.94 kg

DRUGS (3)
  1. CHANTIX [Suspect]
     Indication: SMOKING CESSATION THERAPY
     Route: 048
     Dates: start: 20060721
  2. GLUCOPHAGE [Concomitant]
     Indication: DIABETES MELLITUS
     Route: 048
  3. PAXIL [Concomitant]
     Indication: NERVOUSNESS
     Route: 048

REACTIONS (2)
  - NERVOUSNESS [None]
  - SLEEP DISORDER [None]
